FAERS Safety Report 5871325-8 (Version None)
Quarter: 2008Q3

REPORT INFORMATION
  Report Type: 
  Country: None (occurrence: None)
  Receive Date: 20080904
  Receipt Date: 20080904
  Transmission Date: 20090109
  Serious: No
  Sender: FDA-Public Use
  Company Number: None

PATIENT
  Age: 46 Year
  Sex: Female
  Weight: 111.5849 kg

DRUGS (4)
  1. ZOLOFT [Suspect]
     Indication: DEPRESSION
     Dosage: 50 MG
  2. ZOLOFT [Suspect]
     Indication: PREMENSTRUAL SYNDROME
     Dosage: 50 MG
  3. WELLBUTRIN [Suspect]
     Indication: ANXIETY
     Dosage: 150 MG
  4. GENERIC PAXIL CR [Suspect]
     Dosage: 37.5

REACTIONS (8)
  - ANXIETY [None]
  - DIZZINESS [None]
  - DRUG INEFFECTIVE [None]
  - FEELING JITTERY [None]
  - HEADACHE [None]
  - NAUSEA [None]
  - TREMOR [None]
  - VOMITING [None]
